FAERS Safety Report 5470318-2 (Version None)
Quarter: 2007Q3

REPORT INFORMATION
  Report Type: 
  Country: None (occurrence: None)
  Receive Date: 20070925
  Receipt Date: 20070913
  Transmission Date: 20080115
  Serious: Yes (Disabling)
  Sender: FDA-Public Use
  Company Number: 2007331088

PATIENT
  Sex: Female

DRUGS (1)
  1. LISTERINE (MENTHOL, METHYL SALICYLATE, EUCALYPTOL, THYMOL) [Suspect]
     Indication: DENTAL DISORDER PROPHYLAXIS
     Dosage: 20ML PRN, ORAL
     Route: 048
     Dates: start: 20070101, end: 20070912

REACTIONS (4)
  - APHTHOUS STOMATITIS [None]
  - DRUG HYPERSENSITIVITY [None]
  - GINGIVAL DISORDER [None]
  - WOUND [None]
